FAERS Safety Report 9404662 (Version 5)
Quarter: 2013Q4

REPORT INFORMATION
  Report Type: Spontaneous
  Country: US (occurrence: None)
  Receive Date: 20130708
  Receipt Date: 20131112
  Transmission Date: 20140711
  Serious: Yes (Death, Hospitalization, Other)
  Sender: FDA-Public Use
  Company Number: 2013036768

PATIENT
  Sex: Male
  Weight: 106.6 kg

DRUGS (31)
  1. PRIVIGEN [Suspect]
     Indication: IMMUNODEFICIENCY COMMON VARIABLE
     Dosage: 40 G 1X/3 WEEKS, STARTED OCT-2009 INTRAVENOUS (NOT OTHERWISE SPECIFIED)?
     Route: 042
     Dates: start: 200910
  2. IVIG [Suspect]
     Indication: IMMUNODEFICIENCY COMMON VARIABLE
  3. CAPOTEN (CAPTOPRIL) [Concomitant]
  4. KLONOPIN (CLONAZEPAM) (TABLETS) [Concomitant]
  5. VITAMIN B12 (CYANOCOBALAMIN) [Suspect]
  6. FOCALIN (DEXMETHYLPHENIDATE HYDROCHLORIDE) [Concomitant]
  7. KRISTALOSE (LACTULOSE) [Concomitant]
  8. MELATONIN (MELATONIN) [Concomitant]
  9. SEROQUEL XR (QUETIAPINE) [Concomitant]
  10. VITAMIN B12 (CYANOCOBALAMIN) [Concomitant]
  11. ALDACTAZIDE (ALDACTZZIDE A) [Concomitant]
  12. IMITREX (SUMATRIPTAN) [Concomitant]
  13. RIBOFLAVIN (RIBOFLAVIN) [Concomitant]
  14. CLINDAMYCIN (CLINDAMYCIN) [Concomitant]
  15. KETOCONZAOLE (KETOCONAZOLE) [Concomitant]
  16. CEFOXITIN [Concomitant]
  17. AMIKACIN (AMIKACIN) [Concomitant]
  18. CLARITHROMYCIN (CLARITHROMYCIN) [Concomitant]
  19. DEXMETHYLPHENIDATE (DEXMETHYLPHENIDATE) [Concomitant]
  20. IBUPROFEN (IBUPROFEN) [Concomitant]
  21. NAPROXEN (NAPROXEN) [Concomitant]
  22. NYSTATIN (NYSTATIN) [Concomitant]
  23. PANTOPRAZOLE (PANTOPRAZOLE) [Concomitant]
  24. PROMETHAZINE (PROMETHAZINE) [Concomitant]
  25. SPIRONOLACTONE HYDROCHLOROTHIAZIDE (ALDACTAZIDE A) [Concomitant]
  26. TRAMADOL (TRAMADOL) [Concomitant]
  27. TRYPSIN BALSAM CASTOR OIL (GRANULEX) [Concomitant]
  28. GAMAGARD (IMMUNOGLOBULIN HUMAN NORMAL) [Concomitant]
  29. DOXEPIN (DOXEPIN) [Concomitant]
  30. BACTRIM [Suspect]
  31. DOXYCYCLINE (DOXYCYCLINE) [Suspect]

REACTIONS (34)
  - Acute respiratory failure [None]
  - Hepatitis B [None]
  - Mycobacterium fortuitum infection [None]
  - Bacteraemia [None]
  - Device related infection [None]
  - Ankle fracture [None]
  - Headache [None]
  - Dysphagia [None]
  - Respiratory failure [None]
  - Nosocomial infection [None]
  - Hepatic steatosis [None]
  - Urinary tract disorder [None]
  - Small intestinal obstruction [None]
  - Emotional disorder [None]
  - Sinus tachycardia [None]
  - Atelectasis [None]
  - Ascites [None]
  - Streptococcus test positive [None]
  - Enterococcus test positive [None]
  - Laboratory test interference [None]
  - Atypical mycobacterium test positive [None]
  - Oesophageal motility disorder [None]
  - Renal failure acute [None]
  - Convulsion [None]
  - Respiratory arrest [None]
  - Encephalopathy [None]
  - Electrolyte imbalance [None]
  - Erythema [None]
  - Hypersensitivity [None]
  - Brain oedema [None]
  - Diabetes insipidus [None]
  - Brain injury [None]
  - Brain herniation [None]
  - Brain death [None]
